FAERS Safety Report 9332816 (Version 2)
Quarter: 2013Q3

REPORT INFORMATION
  Report Type: Spontaneous
  Country: US (occurrence: US)
  Receive Date: 20130606
  Receipt Date: 20130726
  Transmission Date: 20140515
  Serious: Yes (Death, Other)
  Sender: FDA-Public Use
  Company Number: US-PFIZER INC-2013169378

PATIENT
  Age: 42 Year
  Sex: Male

DRUGS (7)
  1. REVATIO [Suspect]
     Indication: PULMONARY ARTERIAL HYPERTENSION
     Dosage: 20 MG, 2X/DAY
     Route: 048
  2. REVATIO [Suspect]
     Indication: VASCULAR RESISTANCE SYSTEMIC DECREASED
  3. ENTOCORT [Concomitant]
     Indication: PROTEIN-LOSING GASTROENTEROPATHY
     Dosage: UNK
  4. LASIX [Concomitant]
     Dosage: UNK
  5. ALDACTONE [Concomitant]
     Dosage: UNK
  6. DIURIL [Concomitant]
     Dosage: UNK
  7. CLINDAMYCIN [Concomitant]
     Dosage: UNK

REACTIONS (1)
  - Staphylococcal sepsis [Fatal]
